FAERS Safety Report 12920792 (Version 1)
Quarter: 2016Q4

REPORT INFORMATION
  Report Type: Spontaneous
  Country: US (occurrence: US)
  Receive Date: 20161108
  Receipt Date: 20161108
  Transmission Date: 20170207
  Serious: Yes (Hospitalization, Disabling, Other)
  Sender: FDA-Public Use
  Company Number: US-009507513-1108USA00188

PATIENT
  Sex: Female
  Weight: 65.77 kg

DRUGS (5)
  1. FOSAMAX [Suspect]
     Active Substance: ALENDRONATE SODIUM
     Indication: OSTEOPENIA
     Dosage: 70 MG, QW
     Route: 048
     Dates: start: 200201, end: 201002
  2. FOSAMAX [Suspect]
     Active Substance: ALENDRONATE SODIUM
     Dosage: 70 MG, QW
     Route: 048
     Dates: start: 20090701
  3. FOSAMAX [Suspect]
     Active Substance: ALENDRONATE SODIUM
     Dosage: 70 MG, QW
     Route: 048
     Dates: start: 20100127, end: 20100217
  4. VITAMIN D [Concomitant]
     Active Substance: CHOLECALCIFEROL
     Dosage: 1000 DF, UNK
     Dates: start: 1980
  5. CALCIUM (UNSPECIFIED) [Concomitant]
     Active Substance: CALCIUM
     Dosage: 600  MG, UNK
     Dates: start: 1980

REACTIONS (30)
  - Osteoporosis [Not Recovered/Not Resolved]
  - Poor personal hygiene [Recovered/Resolved]
  - Fall [Unknown]
  - Family stress [Unknown]
  - Stress fracture [Not Recovered/Not Resolved]
  - Dental caries [Not Recovered/Not Resolved]
  - Hypertension [Unknown]
  - Stomatitis [Unknown]
  - Spinal column stenosis [Unknown]
  - Contusion [Unknown]
  - Anxiety [Unknown]
  - Head injury [Unknown]
  - Post procedural haemorrhage [Unknown]
  - Hyperlipidaemia [Unknown]
  - Fall [Unknown]
  - Spinal osteoarthritis [Unknown]
  - Constipation [Unknown]
  - Tendon disorder [Unknown]
  - Gastrointestinal disorder [Unknown]
  - Femur fracture [Recovering/Resolving]
  - Low turnover osteopathy [Not Recovered/Not Resolved]
  - Carotid artery stenosis [Unknown]
  - Lumbar radiculopathy [Unknown]
  - Headache [Not Recovered/Not Resolved]
  - Arthralgia [Not Recovered/Not Resolved]
  - Road traffic accident [Unknown]
  - Tooth disorder [Unknown]
  - Tooth disorder [Unknown]
  - Dermatitis [Unknown]
  - Large intestine polyp [Unknown]

NARRATIVE: CASE EVENT DATE: 2002
